FAERS Safety Report 6356690-X (Version None)
Quarter: 2009Q3

REPORT INFORMATION
  Report Type: 
  Country: None (occurrence: None)
  Receive Date: 20090910
  Receipt Date: 20090910
  Transmission Date: 20100115
  Serious: No
  Sender: FDA-Public Use
  Company Number: None

PATIENT
  Age: 80 Year
  Sex: Male
  Weight: 71.6683 kg

DRUGS (1)
  1. METOCLOPRAMIDE [Suspect]
     Indication: DIVERTICULITIS
     Dosage: 1 TABLET 3XDAILY;+ BEDTIME PO
     Route: 048
     Dates: start: 20080621, end: 20090126

REACTIONS (11)
  - ACTIVITIES OF DAILY LIVING IMPAIRED [None]
  - ANXIETY [None]
  - ASTHENIA [None]
  - DECREASED APPETITE [None]
  - DEPRESSION [None]
  - DISORIENTATION [None]
  - DISTURBANCE IN ATTENTION [None]
  - FATIGUE [None]
  - HEADACHE [None]
  - PARKINSONISM [None]
  - WEIGHT DECREASED [None]
